FAERS Safety Report 18371473 (Version 1)
Quarter: 2020Q4

REPORT INFORMATION
  Report Type: Spontaneous
  Country: GB (occurrence: GB)
  Receive Date: 20201012
  Receipt Date: 20201012
  Transmission Date: 20210114
  Serious: Yes (Congenital Anomaly)
  Sender: FDA-Public Use
  Company Number: GB-JNJFOC-20201014659

PATIENT

DRUGS (1)
  1. STELARA [Suspect]
     Active Substance: USTEKINUMAB
     Indication: CROHN^S DISEASE
     Route: 064

REACTIONS (2)
  - Foetal exposure during pregnancy [Not Recovered/Not Resolved]
  - Foetal cardiac disorder [Unknown]
